FAERS Safety Report 23220789 (Version 1)
Quarter: 2023Q4

REPORT INFORMATION
  Report Type: Spontaneous
  Country: US (occurrence: US)
  Receive Date: 20231123
  Receipt Date: 20231123
  Transmission Date: 20240109
  Serious: Yes (Hospitalization, Other)
  Sender: FDA-Public Use
  Company Number: US-BoehringerIngelheim-2023-BI-273053

PATIENT
  Age: 63 Year
  Sex: Male

DRUGS (6)
  1. EMPAGLIFLOZIN [Suspect]
     Active Substance: EMPAGLIFLOZIN
     Indication: Diabetes mellitus inadequate control
  2. METFORMIN [Suspect]
     Active Substance: METFORMIN HYDROCHLORIDE
     Indication: Diabetes mellitus inadequate control
  3. PREDNISONE [Suspect]
     Active Substance: PREDNISONE
     Indication: Condition aggravated
  4. ZOLEDRONIC [Suspect]
     Active Substance: ZOLEDRONIC ACID
     Indication: Osteoporosis prophylaxis
     Route: 042
  5. INSULIN ASPART [Concomitant]
     Active Substance: INSULIN ASPART
     Indication: Diabetes mellitus inadequate control
  6. INSULIN DETEMIR [Concomitant]
     Active Substance: INSULIN DETEMIR
     Indication: Diabetes mellitus inadequate control

REACTIONS (9)
  - Diabetic ketoacidosis [Unknown]
  - Insulin resistance [Unknown]
  - Hyperglycaemia [Unknown]
  - Starvation [Unknown]
  - Ketosis [Unknown]
  - Fat tissue decreased [Unknown]
  - Lactic acidosis [Unknown]
  - Influenza like illness [Unknown]
  - Acute kidney injury [Unknown]
